FAERS Safety Report 10479077 (Version 2)
Quarter: 2014Q3

REPORT INFORMATION
  Report Type: Report from Study
  Country: US (occurrence: US)
  Receive Date: 20140926
  Receipt Date: 20140926
  Transmission Date: 20150326
  Serious: Yes (Other)
  Sender: FDA-Public Use
  Company Number: PHEH2014US016876

PATIENT
  Sex: Male

DRUGS (2)
  1. TOBI [Suspect]
     Active Substance: TOBRAMYCIN
     Indication: CYSTIC FIBROSIS
     Dosage: 300 MG PER 5 ML, BID
     Route: 055
  2. TOBI [Suspect]
     Active Substance: TOBRAMYCIN
     Indication: LUNG DISORDER

REACTIONS (4)
  - Cystic fibrosis [Unknown]
  - Malaise [Unknown]
  - Pseudomonas infection [Unknown]
  - Condition aggravated [Unknown]
